FAERS Safety Report 4550671-4 (Version None)
Quarter: 2004Q4

REPORT INFORMATION
  Report Type: 
  Country: None (occurrence: None)
  Receive Date: 20041217
  Receipt Date: 20040903
  Transmission Date: 20050328
  Serious: No
  Sender: FDA-Public Use
  Company Number: 2004-BP-06309BP(1)

PATIENT

DRUGS (2)
  1. SPIRIVA [Suspect]
     Dosage: (18 MCG) IH
     Route: 055
  2. ADVAIR (SERETIDE MITE) [Concomitant]

REACTIONS (1)
  - FEELING ABNORMAL [None]
